FAERS Safety Report 17543924 (Version 4)
Quarter: 2020Q1

REPORT INFORMATION
  Report Type: Spontaneous
  Country: FR (occurrence: FR)
  Receive Date: 20200316
  Receipt Date: 20200331
  Transmission Date: 20200409
  Serious: Yes (Hospitalization, Other)
  Sender: FDA-Public Use
  Company Number: FR-MYLANLABS-2020M1026480

PATIENT
  Age: 76 Year
  Sex: Male

DRUGS (8)
  1. MYCOPHENOLIC ACID. [Suspect]
     Active Substance: MYCOPHENOLIC ACID
     Indication: IMMUNOSUPPRESSANT DRUG THERAPY
     Dosage: UNK
     Route: 065
     Dates: start: 1996, end: 201805
  2. PREDNISONE. [Suspect]
     Active Substance: PREDNISONE
     Dosage: UNK
     Route: 065
  3. MYCOPHENOLIC ACID. [Suspect]
     Active Substance: MYCOPHENOLIC ACID
     Indication: RENAL TRANSPLANT
  4. PREDNISONE. [Suspect]
     Active Substance: PREDNISONE
     Indication: RENAL TRANSPLANT
     Dosage: UNK
     Route: 048
     Dates: start: 1996, end: 201805
  5. PREDNISONE. [Suspect]
     Active Substance: PREDNISONE
     Dosage: 10 MG, QD
     Route: 048
     Dates: start: 2018
  6. TACROLIMUS. [Suspect]
     Active Substance: TACROLIMUS
     Indication: IMMUNOSUPPRESSANT DRUG THERAPY
     Dosage: UNK
     Dates: start: 1996, end: 2009
  7. PREDNISONE. [Suspect]
     Active Substance: PREDNISONE
     Indication: IMMUNOSUPPRESSANT DRUG THERAPY
     Dosage: LOW DOSE
     Route: 048
  8. PREDNISOLONE. [Suspect]
     Active Substance: PREDNISOLONE
     Indication: IMMUNOSUPPRESSANT DRUG THERAPY
     Dosage: UNK LOW DOSE
     Route: 048
     Dates: start: 201805

REACTIONS (8)
  - Confusional state [Recovered/Resolved]
  - Pneumocystis jirovecii pneumonia [Recovering/Resolving]
  - Kidney transplant rejection [Unknown]
  - Pneumonia [Recovered/Resolved]
  - Product use in unapproved indication [Unknown]
  - Pneumocystis jirovecii infection [Unknown]
  - Hypercalcaemia [Recovering/Resolving]
  - Fatigue [Recovered/Resolved]

NARRATIVE: CASE EVENT DATE: 201807
